FAERS Safety Report 4421569-7 (Version None)
Quarter: 2004Q3

REPORT INFORMATION
  Report Type: 
  Country: None (occurrence: None)
  Receive Date: 20040804
  Receipt Date: 20040714
  Transmission Date: 20050211
  Serious: Yes (Hospitalization)
  Sender: FDA-Public Use
  Company Number: USA030330687

PATIENT
  Age: 41 Year
  Sex: Female
  Weight: 103 kg

DRUGS (24)
  1. FORTEO [Suspect]
     Indication: OSTEOPOROSIS
     Dosage: 20 UG/1 DAY
     Dates: start: 20030304
  2. EVISTA [Suspect]
     Indication: OSTEOPOROSIS
     Dosage: 60 MG DAY
     Dates: start: 20021125, end: 20030224
  3. PHENERGAN [Concomitant]
  4. XOLAIR [Concomitant]
  5. SINGULAIR (MONTELUKAST) [Concomitant]
  6. COMBIVENT [Concomitant]
  7. ADVAIR DISKUS 100/50 [Concomitant]
  8. PULMICORT [Concomitant]
  9. EFFEXOR [Concomitant]
  10. WELLBUTRIN SR [Concomitant]
  11. XANAX (ALPRAZOLAM DUM) [Concomitant]
  12. SEROQUEL [Concomitant]
  13. PREVACID [Concomitant]
  14. VERAPAMIL [Concomitant]
  15. ORTHO TRI-CYCLEN [Concomitant]
  16. CACLIUM CITRATE [Concomitant]
  17. CELEBREX [Concomitant]
  18. VICODIN [Concomitant]
  19. SKELAXIN [Concomitant]
  20. AMBIEN [Concomitant]
  21. ATROVENT [Concomitant]
  22. ALBUTEROL [Concomitant]
  23. COVERA-HS [Concomitant]
  24. PREDNISONE [Concomitant]

REACTIONS (18)
  - ASTHMA [None]
  - BLOOD PHOSPHORUS DECREASED [None]
  - CHEST DISCOMFORT [None]
  - CONDITION AGGRAVATED [None]
  - DISEASE RECURRENCE [None]
  - DIZZINESS [None]
  - FEAR OF DISEASE [None]
  - INJECTION SITE ERYTHEMA [None]
  - MUSCLE CRAMP [None]
  - NASAL SEPTUM PERFORATION [None]
  - NAUSEA [None]
  - NERVOUSNESS [None]
  - PAIN EXACERBATED [None]
  - RED BLOOD CELL SEDIMENTATION RATE INCREASED [None]
  - RIB FRACTURE [None]
  - SNEEZING [None]
  - VOMITING [None]
  - WEIGHT INCREASED [None]
